FAERS Safety Report 8832550 (Version 1)
Quarter: 2012Q4

REPORT INFORMATION
  Report Type: Spontaneous
  Country: US (occurrence: None)
  Receive Date: 20121009
  Receipt Date: 20121009
  Transmission Date: 20130627
  Serious: Yes (Other)
  Sender: FDA-Public Use
  Company Number: None

PATIENT
  Age: 40 Year
  Sex: Female

DRUGS (1)
  1. ESCITALOPRAM [Suspect]
     Dosage: 1.5 tablet Oral
     Route: 048
     Dates: start: 201112, end: 201209

REACTIONS (3)
  - Headache [None]
  - Disturbance in attention [None]
  - Mood swings [None]
